FAERS Safety Report 6641337-5 (Version None)
Quarter: 2010Q1

REPORT INFORMATION
  Report Type: 
  Country: None (occurrence: None)
  Receive Date: 20100318
  Receipt Date: 20100309
  Transmission Date: 20100710
  Serious: Yes (Hospitalization)
  Sender: FDA-Public Use
  Company Number: CA-AMGEN-QUU398360

PATIENT
  Age: 69 Year
  Sex: Female

DRUGS (20)
  1. ENBREL [Suspect]
     Indication: PSORIATIC ARTHROPATHY
     Route: 058
     Dates: start: 20091205
  2. CALCIUM [Concomitant]
  3. VITAMIN D [Concomitant]
  4. ACTONEL [Concomitant]
  5. OXYCODONE HCL AND ACETAMINOPHEN [Concomitant]
  6. FOLIC ACID [Concomitant]
  7. CLONAZEPAM [Concomitant]
  8. PREDNISONE [Concomitant]
  9. DOMPERIDONE [Concomitant]
  10. PREVACID [Concomitant]
  11. NORTRIPTYLINE HCL [Concomitant]
  12. FUROSEMIDE [Concomitant]
  13. METHOTREXATE [Concomitant]
  14. METOPROLOL TARTRATE [Concomitant]
  15. NORVASC [Concomitant]
  16. DICLOFENAC SODIUM [Concomitant]
  17. UNSPECIFIED MEDICATION [Concomitant]
  18. L-THYROXIN [Concomitant]
  19. FERROUS GLUCONATE [Concomitant]
  20. CETIRIZINE [Concomitant]

REACTIONS (2)
  - FIBULA FRACTURE [None]
  - TIBIA FRACTURE [None]
